FAERS Safety Report 5781814-2 (Version None)
Quarter: 2008Q2

REPORT INFORMATION
  Report Type: 
  Country: None (occurrence: None)
  Receive Date: 20080623
  Receipt Date: 20080613
  Transmission Date: 20081010
  Serious: Yes (Hospitalization)
  Sender: FDA-Public Use
  Company Number: BR-ABBOTT-08P-020-0457086-01

PATIENT
  Sex: Male
  Weight: 60 kg

DRUGS (11)
  1. KALETRA [Suspect]
     Indication: HIV INFECTION
     Dosage: 400/100 MG
     Route: 048
     Dates: start: 20071127
  2. FLUCONAZOLE [Concomitant]
     Indication: ORAL CANDIDIASIS
     Dates: start: 20080115, end: 20080119
  3. FLUCONAZOLE [Concomitant]
     Dates: start: 20071130, end: 20071204
  4. PYRITHIONE ZINC [Concomitant]
     Indication: SEBORRHOEIC DERMATITIS
     Dates: start: 20080125, end: 20080201
  5. SUPRADYN [Concomitant]
     Indication: MEDICAL DIET
     Dates: start: 20080301, end: 20080430
  6. SUPRADYN [Concomitant]
     Dates: start: 20071217, end: 20080101
  7. FERROUS SULFATE TAB [Concomitant]
     Indication: MEDICAL DIET
     Dates: start: 20080123
  8. BROMAZEPAM [Concomitant]
     Indication: ANXIETY
     Dates: start: 20071130, end: 20071130
  9. COTRIM [Concomitant]
     Indication: NEUROTOXICITY
     Dates: start: 20071217
  10. COTRIM [Concomitant]
     Indication: PNEUMOCYSTIS JIROVECI PNEUMONIA
  11. COTRIM [Concomitant]
     Indication: PROPHYLAXIS

REACTIONS (2)
  - CHOLURIA [None]
  - JAUNDICE [None]
